FAERS Safety Report 25076295 (Version 1)
Quarter: 2025Q1

REPORT INFORMATION
  Report Type: Spontaneous
  Country: US (occurrence: US)
  Receive Date: 20250313
  Receipt Date: 20250313
  Transmission Date: 20250409
  Serious: Yes (Hospitalization, Other)
  Sender: ACERUS PHARMACEUTICALS CORPORATION
  Company Number: US-ACERUSPHRM-2024-US-000031

PATIENT
  Age: 21 Year

DRUGS (3)
  1. TESTOSTERONE [Suspect]
     Active Substance: TESTOSTERONE
     Indication: Hormone replacement therapy
  2. HEPARIN [Concomitant]
     Active Substance: HEPARIN SODIUM
     Indication: Pulmonary embolism
  3. Direct oral anticoagulant NOS [Concomitant]
     Indication: Pulmonary embolism

REACTIONS (2)
  - Pulmonary embolism [Recovered/Resolved]
  - Product use issue [Unknown]
